FAERS Safety Report 8027751-4 (Version None)
Quarter: 2012Q1

REPORT INFORMATION
  Report Type: 
  Country: None (occurrence: None)
  Receive Date: 20120106
  Receipt Date: 20120106
  Transmission Date: 20120608
  Serious: Yes (Death)
  Sender: FDA-Public Use
  Company Number: None

PATIENT
  Age: 52 Year
  Sex: Female
  Weight: 56.245 kg

DRUGS (3)
  1. PEGASYS [Concomitant]
  2. INCIVEK [Suspect]
     Indication: HEPATITIS C
     Dosage: 2 TABLETS
     Route: 048
     Dates: start: 20111118, end: 20111202
  3. RIBAPAK -RIBAVIRIN- [Concomitant]
     Indication: HEPATITIS C
     Dosage: 1 TABLET
     Route: 048
     Dates: start: 20111118, end: 20111202

REACTIONS (7)
  - RASH ERYTHEMATOUS [None]
  - COMPLETED SUICIDE [None]
  - SKIN LESION [None]
  - RASH PRURITIC [None]
  - MALAISE [None]
  - RASH MACULO-PAPULAR [None]
  - CHILLS [None]
